FAERS Safety Report 6029579-3 (Version None)
Quarter: 2009Q1

REPORT INFORMATION
  Report Type: 
  Country: None (occurrence: None)
  Receive Date: 20090107
  Receipt Date: 20081230
  Transmission Date: 20090719
  Serious: Yes (Life-Threatening, Hospitalization)
  Sender: FDA-Public Use
  Company Number: ES-AMGEN-US240204

PATIENT
  Age: 28 Year
  Sex: Female

DRUGS (5)
  1. ENBREL [Suspect]
     Indication: CONNECTIVE TISSUE DISORDER
     Route: 058
     Dates: start: 20030729, end: 20070523
  2. IBUPROFEN TABLETS [Concomitant]
     Dosage: UNSPECIFIED
  3. OMEPRAZOLE [Concomitant]
     Dates: start: 20030611
  4. HEMOVAS [Concomitant]
     Route: 048
     Dates: start: 20030611, end: 20070523
  5. ZAMENE [Concomitant]
     Route: 048
     Dates: start: 20030611

REACTIONS (2)
  - ACUTE RESPIRATORY FAILURE [None]
  - PNEUMONIA [None]
